FAERS Safety Report 9924305 (Version 1)
Quarter: 2014Q1

REPORT INFORMATION
  Report Type: Spontaneous
  Country: DE (occurrence: DE)
  Receive Date: 20140226
  Receipt Date: 20140226
  Transmission Date: 20141002
  Serious: Yes (Hospitalization)
  Sender: FDA-Public Use
  Company Number: DE-ROCHE-1355390

PATIENT
  Sex: Male

DRUGS (4)
  1. LUCENTIS [Suspect]
     Indication: AGE-RELATED MACULAR DEGENERATION
     Route: 050
     Dates: start: 20121106
  2. LUCENTIS [Suspect]
     Route: 050
     Dates: end: 20130313
  3. EXFORGE [Concomitant]
     Indication: HYPERTENSION
     Dosage: DOSE: 2 TABLETS PER DAY
     Route: 065
     Dates: start: 2002
  4. FLUOROPOS [Concomitant]
     Indication: GLAUCOMA
     Dosage: DOSE: 1 EYE DROP DAILY IN LEFT EYE AND 2 DROPS DAILY IN RIGHT EYE
     Route: 047
     Dates: start: 2009

REACTIONS (1)
  - Dyspnoea [Recovered/Resolved]
